FAERS Safety Report 23429322 (Version 27)
Quarter: 2024Q4

REPORT INFORMATION
  Report Type: Spontaneous
  Country: CA (occurrence: CA)
  Receive Date: 20240122
  Receipt Date: 20241016
  Transmission Date: 20250115
  Serious: Yes (Other)
  Sender: PFIZER
  Company Number: CA-PFIZER INC-PV202300189298

PATIENT
  Age: 64 Year
  Sex: Female
  Weight: 71.5 kg

DRUGS (27)
  1. ZIRABEV [Suspect]
     Active Substance: BEVACIZUMAB-BVZR
     Indication: Colon cancer
     Dosage: 358 MG
     Dates: start: 20231102
  2. ZIRABEV [Suspect]
     Active Substance: BEVACIZUMAB-BVZR
     Dosage: 358 MG
     Dates: start: 20231116
  3. ZIRABEV [Suspect]
     Active Substance: BEVACIZUMAB-BVZR
     Dosage: 357 MG
  4. ZIRABEV [Suspect]
     Active Substance: BEVACIZUMAB-BVZR
     Dosage: 378 MG
  5. ZIRABEV [Suspect]
     Active Substance: BEVACIZUMAB-BVZR
     Dosage: 357 MG
     Dates: start: 20231130
  6. ZIRABEV [Suspect]
     Active Substance: BEVACIZUMAB-BVZR
     Dosage: 350 MG
     Dates: start: 20231214
  7. ZIRABEV [Suspect]
     Active Substance: BEVACIZUMAB-BVZR
     Dosage: 350 MG, EVERY 2 WEEK
     Dates: start: 20240104
  8. ZIRABEV [Suspect]
     Active Substance: BEVACIZUMAB-BVZR
     Dosage: 347 MG EVERY 2 WEEKS
     Route: 042
     Dates: start: 20240118
  9. ZIRABEV [Suspect]
     Active Substance: BEVACIZUMAB-BVZR
     Dosage: 347 MG
     Route: 042
     Dates: start: 20240201
  10. ZIRABEV [Suspect]
     Active Substance: BEVACIZUMAB-BVZR
     Dosage: 347 MG
     Route: 042
     Dates: start: 20240215
  11. ZIRABEV [Suspect]
     Active Substance: BEVACIZUMAB-BVZR
     Dosage: 332 MG
     Route: 042
     Dates: start: 20240307
  12. ZIRABEV [Suspect]
     Active Substance: BEVACIZUMAB-BVZR
     Dosage: 334 MG, EVERY 2 WEEKS
     Route: 042
  13. ZIRABEV [Suspect]
     Active Substance: BEVACIZUMAB-BVZR
     Dosage: 334 MG
     Route: 042
     Dates: start: 20240404
  14. ZIRABEV [Suspect]
     Active Substance: BEVACIZUMAB-BVZR
     Dosage: 334 MG EVERY 2 WEEKS
     Route: 042
     Dates: start: 20240418
  15. ZIRABEV [Suspect]
     Active Substance: BEVACIZUMAB-BVZR
     Dosage: 334 MG EVERY 2 WEEKS
     Dates: start: 20240502
  16. ZIRABEV [Suspect]
     Active Substance: BEVACIZUMAB-BVZR
     Dosage: 750 MG (RECEIVED DOSING IS 5MG/KG/EVERY 2 WEEKS FOR 2 DOSES)
     Dates: start: 20240516
  17. ZIRABEV [Suspect]
     Active Substance: BEVACIZUMAB-BVZR
     Dosage: 321 MG (5MG/KG Q2WEEKS)
     Dates: start: 20240530
  18. ZIRABEV [Suspect]
     Active Substance: BEVACIZUMAB-BVZR
     Dosage: 321 MG
     Dates: start: 20240613
  19. ZIRABEV [Suspect]
     Active Substance: BEVACIZUMAB-BVZR
     Dosage: 313 MG
     Dates: start: 20240627
  20. ZIRABEV [Suspect]
     Active Substance: BEVACIZUMAB-BVZR
     Dosage: 311 MG
     Dates: start: 20240725
  21. ZIRABEV [Suspect]
     Active Substance: BEVACIZUMAB-BVZR
     Dosage: 308 MG, EVERY 2 WEEK
     Route: 042
     Dates: start: 20240905
  22. ZIRABEV [Suspect]
     Active Substance: BEVACIZUMAB-BVZR
     Dosage: 300 MG EVERY 2 WEEK (Q2WEEKS, INFUSION NUMBER: 22)
     Route: 042
     Dates: start: 20240919, end: 20240919
  23. CANDESTAN [Concomitant]
     Dosage: UNK
  24. HEPARIN [Concomitant]
     Active Substance: HEPARIN SODIUM
     Dosage: 5 ML
  25. HEPARIN [Concomitant]
     Active Substance: HEPARIN SODIUM
     Dosage: UNK, 5 IU/ML (10-20 ML)
  26. LONSURF [Concomitant]
     Active Substance: TIPIRACIL HYDROCHLORIDE\TRIFLURIDINE
     Dosage: UNK, REDUCED LONSURF BY HALF
  27. POTASSIUM [Concomitant]
     Active Substance: POTASSIUM
     Dosage: UNK

REACTIONS (14)
  - Hypertension [Not Recovered/Not Resolved]
  - Central venous catheterisation [Unknown]
  - Weight decreased [Not Recovered/Not Resolved]
  - White blood cell count decreased [Not Recovered/Not Resolved]
  - White blood cell count abnormal [Unknown]
  - Productive cough [Unknown]
  - Fatigue [Recovering/Resolving]
  - Dyspnoea [Unknown]
  - Nausea [Not Recovered/Not Resolved]
  - Weight increased [Unknown]
  - Blood pressure systolic increased [Unknown]
  - Vomiting [Not Recovered/Not Resolved]
  - Gastrooesophageal reflux disease [Unknown]
  - Inappropriate schedule of product administration [Unknown]

NARRATIVE: CASE EVENT DATE: 20230101
